FAERS Safety Report 6032998-2 (Version None)
Quarter: 2009Q1

REPORT INFORMATION
  Report Type: 
  Country: None (occurrence: None)
  Receive Date: 20090109
  Receipt Date: 20081230
  Transmission Date: 20090719
  Serious: Yes (Other)
  Sender: FDA-Public Use
  Company Number: B0552927A

PATIENT
  Age: 42 Year
  Sex: Male

DRUGS (5)
  1. LAMICTAL [Suspect]
     Dosage: 200MG PER DAY
     Route: 048
     Dates: start: 20061201
  2. RITALIN-SR [Concomitant]
     Dosage: 20MG TWICE PER DAY
     Route: 048
     Dates: start: 20040101
  3. CYMBALTA [Concomitant]
     Indication: DRUG USE FOR UNKNOWN INDICATION
     Dosage: 30MG PER DAY
     Route: 065
     Dates: start: 20080301
  4. DIFLUCAN [Concomitant]
     Indication: DRUG USE FOR UNKNOWN INDICATION
     Route: 065
  5. FUNGICIDE [Concomitant]
     Indication: DRUG USE FOR UNKNOWN INDICATION
     Route: 065

REACTIONS (9)
  - ANAEMIA [None]
  - EMPHYSEMA [None]
  - LICHENIFICATION [None]
  - MOUTH ULCERATION [None]
  - ORAL CANDIDIASIS [None]
  - ORAL DISORDER [None]
  - ORAL LICHEN PLANUS [None]
  - ORAL PAIN [None]
  - THROMBOCYTHAEMIA [None]
